FAERS Safety Report 10704495 (Version 1)
Quarter: 2014Q4

REPORT INFORMATION
  Report Type: Report from Study
  Country: US (occurrence: None)
  Receive Date: 20141224
  Receipt Date: 20141224
  Transmission Date: 20150529
  Serious: No
  Sender: FDA-Public Use
  Company Number: CABO-14004846

PATIENT
  Age: 87 Year
  Sex: Male

DRUGS (6)
  1. COMETRIQ [Suspect]
     Active Substance: CABOZANTINIB S-MALATE
     Indication: PROSTATE CANCER
     Route: 048
     Dates: start: 20140911
  2. MIRALAX (MACROGOL) [Concomitant]
  3. HYDROCODONE (HYDROCODONE) [Concomitant]
     Active Substance: HYDROCODONE
  4. PREDNISONE (PREDNISONE) [Concomitant]
     Active Substance: PREDNISONE
  5. MIRTAZAPINE (MIRTAZAPINE) [Concomitant]
     Active Substance: MIRTAZAPINE
  6. TRAMADOL (TRAMADOL HYDROCHLORIDE) [Concomitant]
     Active Substance: TRAMADOL HYDROCHLORIDE

REACTIONS (8)
  - Skin ulcer [None]
  - Decreased appetite [None]
  - Diarrhoea [None]
  - Fatigue [None]
  - Red blood cell count decreased [None]
  - Asthenia [None]
  - Nausea [None]
  - Off label use [None]
